FAERS Safety Report 8775305 (Version 1)
Quarter: 2012Q4

REPORT INFORMATION
  Report Type: 
  Country: US (occurrence: US)
  Receive Date: 20120910
  Receipt Date: 20120910
  Transmission Date: 20130627
  Serious: Yes (Hospitalization)
  Sender: FDA-Public Use
  Company Number: US-US-EMD SERONO, INC.-7159041

PATIENT
  Age: 55 Year
  Sex: Male

DRUGS (4)
  1. EGRIFTA [Suspect]
     Indication: LIPODYSTROPHY ACQUIRED
     Route: 058
     Dates: start: 20120502, end: 20120808
  2. TRICOR [Concomitant]
     Indication: BLOOD CHOLESTEROL
     Dates: start: 1990
  3. CRESTOR [Concomitant]
     Indication: BLOOD CHOLESTEROL
     Dates: start: 1990
  4. PLAVIX [Concomitant]
     Indication: MYOCARDIAL INFARCTION
     Dates: start: 2000

REACTIONS (2)
  - Myocardial infarction [Recovering/Resolving]
  - Diabetes mellitus [Recovering/Resolving]
